FAERS Safety Report 4366630-0 (Version None)
Quarter: 2004Q2

REPORT INFORMATION
  Report Type: 
  Country: None (occurrence: None)
  Receive Date: 20040527
  Receipt Date: 20040518
  Transmission Date: 20050107
  Serious: Yes (Disabling, Other)
  Sender: FDA-Public Use
  Company Number: JP-BRISTOL-MYERS SQUIBB COMPANY-12596227

PATIENT
  Age: 92 Year
  Sex: Female

DRUGS (8)
  1. GATIFLO [Suspect]
     Indication: UPPER RESPIRATORY TRACT INFECTION
     Route: 048
     Dates: start: 20040512, end: 20040516
  2. GATIFLO [Suspect]
     Indication: URINARY TRACT INFECTION
     Route: 048
     Dates: start: 20040512, end: 20040516
  3. NORVASC [Concomitant]
     Route: 048
     Dates: start: 19951016
  4. AZELASTINE HCL [Concomitant]
     Route: 048
     Dates: start: 19951016
  5. CEREKINON [Concomitant]
     Route: 048
     Dates: start: 19951016
  6. LOXONIN [Concomitant]
     Route: 048
     Dates: start: 20040512, end: 20040516
  7. MUCODYNE [Concomitant]
     Route: 048
     Dates: start: 20040512, end: 20040516
  8. DASEN [Concomitant]
     Route: 048
     Dates: start: 20040512, end: 20040516

REACTIONS (3)
  - DEMENTIA [None]
  - DEPRESSED LEVEL OF CONSCIOUSNESS [None]
  - HYPOGLYCAEMIA [None]
